FAERS Safety Report 9714127 (Version 2)
Quarter: 2015Q3

REPORT INFORMATION
  Report Type: Spontaneous
  Country: US (occurrence: US)
  Receive Date: 20131126
  Receipt Date: 20150803
  Transmission Date: 20151125
  Serious: No
  Sender: FDA-Public Use
  Company Number: US-GILEAD-2008-0018987

PATIENT
  Age: 60 Year
  Sex: Male

DRUGS (10)
  1. AMLODIPINE [Concomitant]
     Active Substance: AMLODIPINE BESYLATE
     Dates: start: 20080820
  2. LETAIRIS [Suspect]
     Active Substance: AMBRISENTAN
     Indication: PULMONARY ARTERIAL HYPERTENSION
     Route: 048
  3. PRAVASTATIN [Concomitant]
     Active Substance: PRAVASTATIN\PRAVASTATIN SODIUM
     Dates: start: 20080820
  4. OMEPRAZOLE. [Concomitant]
     Active Substance: OMEPRAZOLE
     Dates: start: 20080820
  5. ASA [Concomitant]
     Active Substance: ASPIRIN
     Dates: start: 20080820
  6. TERAZOSIN [Concomitant]
     Active Substance: TERAZOSIN\TERAZOSIN HYDROCHLORIDE
     Dates: start: 20080820
  7. SMZ [Concomitant]
     Dates: start: 20080820
  8. CELLCEPT [Concomitant]
     Active Substance: MYCOPHENOLATE MOFETIL\MYCOPHENOLATE MOFETIL HYDROCHLORIDE
     Dates: start: 20080820
  9. WARFARIN [Concomitant]
     Active Substance: WARFARIN
     Dates: start: 20080820
  10. LYRICA [Concomitant]
     Active Substance: PREGABALIN
     Dates: start: 20080820

REACTIONS (1)
  - Joint swelling [None]

NARRATIVE: CASE EVENT DATE: 200810
